FAERS Safety Report 4668189-7 (Version None)
Quarter: 2005Q2

REPORT INFORMATION
  Report Type: 
  Country: None (occurrence: None)
  Receive Date: 20050523
  Receipt Date: 20050125
  Transmission Date: 20051028
  Serious: Yes (Other)
  Sender: FDA-Public Use
  Company Number: PHEH2005US01288

PATIENT
  Age: 57 Year
  Sex: Male

DRUGS (5)
  1. ZOMETA [Suspect]
  2. NORCO [Concomitant]
  3. OXYCONTIN [Concomitant]
  4. AVASTIN [Concomitant]
  5. INTERFERON [Concomitant]

REACTIONS (4)
  - ASEPTIC NECROSIS BONE [None]
  - LOCALISED INFECTION [None]
  - SWELLING FACE [None]
  - WOUND DEBRIDEMENT [None]
